FAERS Safety Report 6306933-3 (Version None)
Quarter: 2009Q3

REPORT INFORMATION
  Report Type: 
  Country: None (occurrence: None)
  Receive Date: 20090810
  Receipt Date: 20090724
  Transmission Date: 20100115
  Serious: No
  Sender: FDA-Public Use
  Company Number: F03200900085

PATIENT
  Age: 61 Year
  Sex: Male

DRUGS (6)
  1. OFORTA [Suspect]
     Indication: CHRONIC LYMPHOCYTIC LEUKAEMIA
     Dosage: 40 MG/M2 FOR 3 DAYS, ORAL
     Route: 048
     Dates: start: 20090312, end: 20090314
  2. CYCLOPHOSPHAMIDE [Suspect]
     Indication: CHRONIC LYMPHOCYTIC LEUKAEMIA
     Dosage: 250 MG/M2 FOR 3 DAYS ORAL
     Route: 048
     Dates: start: 20090312, end: 20090314
  3. VALTREX [Concomitant]
  4. ZOPICLONE (ZOPICLONE) [Concomitant]
  5. PIPERACILLIN AND TAZOBACTAM [Concomitant]
  6. IBUPROFEN TABLETS [Concomitant]

REACTIONS (5)
  - AGRANULOCYTOSIS [None]
  - DRUG TOXICITY [None]
  - EPSTEIN-BARR VIRUS TEST POSITIVE [None]
  - HEPATIC FAILURE [None]
  - PHARYNGITIS [None]
